FAERS Safety Report 6562718 (Version 2)
Quarter: 2015Q2

REPORT INFORMATION
  Report Type: Spontaneous
  Country: None (occurrence: None)
  Receive Date: 20080211
  Receipt Date: 20150504
  Transmission Date: 20150821
  Serious: Yes (Other)
  Sender: FDA-Public Use
  Company Number: 2008US000411

PATIENT
  Age: 79 Year
  Sex: Female
  Weight: 57 kg

DRUGS (18)
  1. AMLODIPINE (AMLODIPINE) FORMULATION UNKNOWN [Suspect]
     Active Substance: AMLODIPINE BESYLATE
     Indication: PRODUCT USED FOR UNKNOWN INDICATION
     Route: 048
  2. SOLIFENACIN SUCCINATE [Suspect]
     Active Substance: SOLIFENACIN SUCCINATE
     Indication: HYPERTONIC BLADDER
     Dosage: 5 MG, UID/QD, ORAL
     Route: 048
  3. TROSPIUM CHLORIDE (TROSPIUM CHLORIDE) [Suspect]
     Active Substance: TROSPIUM CHLORIDE
     Indication: PRODUCT USED FOR UNKNOWN INDICATION
     Route: 048
  4. ASPIRIN (ACETYLSALICYLIC ACID) [Concomitant]
     Active Substance: ASPIRIN
  5. CARVEDILOL. [Concomitant]
     Active Substance: CARVEDILOL
  6. IBUPROFEN. [Concomitant]
     Active Substance: IBUPROFEN
  7. TOLTERODINE (TOLTERODINE) FORMULATION UNKNOWN [Suspect]
     Active Substance: TOLTERODINE
     Indication: PRODUCT USED FOR UNKNOWN INDICATION
     Route: 048
  8. QUINAPRIL [Concomitant]
     Active Substance: QUINAPRIL\QUINAPRIL HYDROCHLORIDE
  9. MULTIVITAMIN [Concomitant]
     Active Substance: VITAMINS
  10. GEMFIBROZIL. [Concomitant]
     Active Substance: GEMFIBROZIL
     Indication: PRODUCT USED FOR UNKNOWN INDICATION
     Route: 048
  11. ATORVASTATIN [Suspect]
     Active Substance: ATORVASTATIN
     Indication: PRODUCT USED FOR UNKNOWN INDICATION
     Route: 048
  12. LEVOTHYROXINE SODIUM. [Suspect]
     Active Substance: LEVOTHYROXINE SODIUM
     Indication: PRODUCT USED FOR UNKNOWN INDICATION
     Route: 048
  13. FUROSEMIDE (FUROSEMIDE) [Suspect]
     Active Substance: FUROSEMIDE
     Indication: PRODUCT USED FOR UNKNOWN INDICATION
     Route: 048
  14. CYCLOBENZAPRINE [Suspect]
     Active Substance: CYCLOBENZAPRINE
     Indication: PRODUCT USED FOR UNKNOWN INDICATION
     Route: 048
  15. CLOPIDOGREL [Concomitant]
     Active Substance: CLOPIDOGREL BISULFATE
  16. COLESEVELAM (COLESEVELAM) FORMULATION UNKNOWN [Suspect]
     Active Substance: COLESEVELAM
     Indication: HYPERLIPIDAEMIA
     Route: 048
  17. DONEPEZIL (DONEPEZIL) FORMULATION UNKNOWN [Suspect]
     Active Substance: DONEPEZIL
     Indication: PRODUCT USED FOR UNKNOWN INDICATION
     Route: 048
  18. ESOMEPRAZOLE [Concomitant]
     Active Substance: ESOMEPRAZOLE

REACTIONS (17)
  - Dementia Alzheimer^s type [None]
  - Decreased activity [None]
  - Drug interaction [None]
  - Blood pressure inadequately controlled [None]
  - Urinary incontinence [None]
  - Drug dose omission [None]
  - Medication error [None]
  - Confusional state [None]
  - Treatment noncompliance [None]
  - Disease progression [None]
  - No therapeutic response [None]
  - Muscle spasms [None]
  - Expired product administered [None]
  - Delirium [None]
  - Abnormal behaviour [None]
  - Impaired self-care [None]
  - Incorrect dose administered [None]
